FAERS Safety Report 22896675 (Version 3)
Quarter: 2023Q4

REPORT INFORMATION
  Report Type: Spontaneous
  Country: JP (occurrence: JP)
  Receive Date: 20230901
  Receipt Date: 20231012
  Transmission Date: 20240110
  Serious: Yes (Hospitalization)
  Sender: FDA-Public Use
  Company Number: JP-KOREA IPSEN Pharma-2023-13278

PATIENT
  Age: 56 Year
  Sex: Male

DRUGS (14)
  1. LANREOTIDE ACETATE [Suspect]
     Active Substance: LANREOTIDE ACETATE
     Indication: Pancreatic neuroendocrine tumour
     Route: 058
     Dates: start: 20210325, end: 20210415
  2. LANREOTIDE ACETATE [Suspect]
     Active Substance: LANREOTIDE ACETATE
     Route: 058
     Dates: start: 20210624, end: 202203
  3. LANREOTIDE ACETATE [Suspect]
     Active Substance: LANREOTIDE ACETATE
     Route: 058
     Dates: start: 202204, end: 20230302
  4. AFINITOR [Suspect]
     Active Substance: EVEROLIMUS
     Indication: Product used for unknown indication
     Dosage: BETWEEN BREAKFAST AND LUNCH
     Route: 048
     Dates: start: 20210325, end: 20210506
  5. AFINITOR [Suspect]
     Active Substance: EVEROLIMUS
     Dosage: BETWEEN BREAKFAST AND LUNCH
     Route: 048
     Dates: start: 202106, end: 202203
  6. AFINITOR [Suspect]
     Active Substance: EVEROLIMUS
     Dosage: BETWEEN BREAKFAST AND LUNCH
     Route: 048
     Dates: end: 20230316
  7. ALFACALCIDOL [Concomitant]
     Active Substance: ALFACALCIDOL
     Indication: Blood calcium decreased
     Dates: start: 202106, end: 202107
  8. ALFACALCIDOL [Concomitant]
     Active Substance: ALFACALCIDOL
     Dates: start: 202107
  9. CALCIUM ASPARTATE [Concomitant]
     Active Substance: CALCIUM ASPARTATE
     Indication: Blood calcium decreased
     Dosage: 1600 MILLIGRAM/DAY PO JUL/2021-NI
     Dates: start: 202106, end: 202107
  10. CALCIUM ASPARTATE [Concomitant]
     Active Substance: CALCIUM ASPARTATE
     Dates: start: 202106, end: 202107
  11. CALCIUM ASPARTATE [Concomitant]
     Active Substance: CALCIUM ASPARTATE
     Dates: start: 202107
  12. AMLODIPINE [Concomitant]
     Active Substance: AMLODIPINE BESYLATE
     Indication: Hypertension
     Dosage: 5 MG/DAY
     Route: 048
  13. URSO [Concomitant]
     Active Substance: URSODIOL
     Indication: Pancreatic neuroendocrine tumour
     Dosage: AFTER BREAKFAST AND SUPPER
     Dates: start: 20230331
  14. INSULIN GLARGINE [Concomitant]
     Active Substance: INSULIN GLARGINE
     Indication: Diabetes mellitus
     Dosage: 18 IU/DAY, BEFORE BREAKFAST
     Route: 058

REACTIONS (2)
  - Hypoparathyroidism [Recovered/Resolved]
  - Hypocalcaemia [Recovered/Resolved]

NARRATIVE: CASE EVENT DATE: 20210415
